FAERS Safety Report 11397019 (Version 3)
Quarter: 2015Q3

REPORT INFORMATION
  Report Type: Spontaneous
  Country: US (occurrence: US)
  Receive Date: 20150819
  Receipt Date: 20150928
  Transmission Date: 20151125
  Serious: No
  Sender: FDA-Public Use
  Company Number: US-PFIZER INC-2015273817

PATIENT
  Age: 60 Year
  Sex: Female

DRUGS (1)
  1. DUAVEE [Suspect]
     Active Substance: BAZEDOXIFENE ACETATE\ESTROGENS, CONJUGATED
     Indication: MENOPAUSAL SYMPTOMS
     Dosage: 0.45/2.5 MG, DAILY
     Route: 048
     Dates: start: 20141210, end: 20150723

REACTIONS (4)
  - Dry skin [Unknown]
  - Skin exfoliation [Recovered/Resolved]
  - Contraindicated drug administered [Unknown]
  - Vulvovaginal dryness [Recovered/Resolved]

NARRATIVE: CASE EVENT DATE: 20150723
